FAERS Safety Report 9902967 (Version 2)
Quarter: 2014Q1

REPORT INFORMATION
  Report Type: Report from Study
  Country: DE (occurrence: DE)
  Receive Date: 20140217
  Receipt Date: 20140217
  Transmission Date: 20141002
  Serious: Yes (Death, Life-Threatening, Hospitalization, Disabling)
  Sender: FDA-Public Use
  Company Number: PHHO2010DE10861

PATIENT
  Age: 58 Year
  Sex: Male
  Weight: 83.5 kg

DRUGS (5)
  1. SANDIMMUN OPTORAL [Suspect]
     Indication: RENAL TRANSPLANT
     Dosage: 1.6 MG, BID
     Dates: start: 20080808
  2. NO TREATMENT RECEIVED [Suspect]
     Indication: RENAL TRANSPLANT
     Dosage: NO TREATMENT
  3. SIMULECT [Concomitant]
     Indication: RENAL TRANSPLANT
     Dosage: 20 MG, EACH ONCE
     Route: 042
     Dates: start: 20080808
  4. MYFORTIC [Concomitant]
     Indication: RENAL TRANSPLANT
     Dosage: 1400 MG, BID
     Route: 048
     Dates: start: 20080808
  5. CORTICOSTEROIDS [Concomitant]
     Indication: RENAL TRANSPLANT

REACTIONS (7)
  - Sepsis [Fatal]
  - Peripheral arterial occlusive disease [Fatal]
  - Urinary tract infection [Recovered/Resolved]
  - Urinary retention [Recovered/Resolved]
  - Ureteric dilatation [Recovered/Resolved]
  - Urethral disorder [Recovered/Resolved]
  - Klebsiella infection [Recovered/Resolved]
